FAERS Safety Report 9729717 (Version 1)
Quarter: 2013Q4

REPORT INFORMATION
  Report Type: Spontaneous
  Country: US (occurrence: US)
  Receive Date: 20131204
  Receipt Date: 20131204
  Transmission Date: 20140711
  Serious: No
  Sender: FDA-Public Use
  Company Number: US-GILEAD-2009-0021859

PATIENT
  Sex: Female
  Weight: 97.52 kg

DRUGS (17)
  1. LETAIRIS [Suspect]
     Indication: PULMONARY ARTERIAL HYPERTENSION
     Route: 048
     Dates: start: 20090227
  2. REVATIO [Concomitant]
  3. LASIX [Concomitant]
  4. VERAPAMIL [Concomitant]
  5. HUMULIN R [Concomitant]
  6. ALLOPURINOL [Concomitant]
  7. GEMFIBROZIL [Concomitant]
  8. ALBUTEROL [Concomitant]
  9. LYRICA [Concomitant]
  10. ACTONEL [Concomitant]
  11. ADVAIR [Concomitant]
  12. NEXIUM [Concomitant]
  13. VITAMIN B-12 [Concomitant]
  14. CATAPRES-TTS 3 PATCH [Concomitant]
  15. ASPIRIN [Concomitant]
  16. MUTLIVITAMIN [Concomitant]
  17. COLCHICINE [Concomitant]

REACTIONS (1)
  - Swelling [Unknown]
